FAERS Safety Report 5716796-2 (Version None)
Quarter: 2008Q2

REPORT INFORMATION
  Report Type: 
  Country: None (occurrence: None)
  Receive Date: 20080424
  Receipt Date: 20070627
  Transmission Date: 20081010
  Serious: No
  Sender: FDA-Public Use
  Company Number: US-BAYER-200712006BWH

PATIENT
  Age: 57 Year
  Sex: Male

DRUGS (7)
  1. LEVITRA [Suspect]
     Indication: ERECTILE DYSFUNCTION
     Route: 048
     Dates: start: 20070101
  2. LEVITRA [Suspect]
     Route: 048
     Dates: start: 20070101
  3. LEVITRA [Suspect]
     Route: 048
     Dates: start: 20070101
  4. LEVITRA [Suspect]
     Route: 048
     Dates: start: 20070101
  5. LEVITRA [Suspect]
     Route: 048
     Dates: start: 20070101
  6. ZIAC [Concomitant]
     Indication: HYPERTENSION
  7. AMARYL [Concomitant]
     Indication: DIABETES MELLITUS

REACTIONS (3)
  - ERECTILE DYSFUNCTION [None]
  - HEADACHE [None]
  - NAUSEA [None]
